FAERS Safety Report 7608014-5 (Version None)
Quarter: 2011Q3

REPORT INFORMATION
  Report Type: 
  Country: None (occurrence: None)
  Receive Date: 20110714
  Receipt Date: 20110706
  Transmission Date: 20111222
  Serious: Yes (Other)
  Sender: FDA-Public Use
  Company Number: CA-JNJFOC-20110703870

PATIENT
  Sex: Female

DRUGS (3)
  1. UNSPECIFIED BIRTH CONTROL [Concomitant]
  2. IMURAN [Concomitant]
  3. REMICADE [Suspect]
     Indication: CROHN'S DISEASE
     Route: 042
     Dates: start: 20090101

REACTIONS (2)
  - BLOOD IRON DECREASED [None]
  - WEIGHT FLUCTUATION [None]
